FAERS Safety Report 4659463-9 (Version None)
Quarter: 2005Q2

REPORT INFORMATION
  Report Type: 
  Country: None (occurrence: None)
  Receive Date: 20050412
  Receipt Date: 20050119
  Transmission Date: 20051028
  Serious: No
  Sender: FDA-Public Use
  Company Number: 2004S1000277

PATIENT
  Sex: Male
  Weight: 49 kg

DRUGS (1)
  1. CUBICIN [Suspect]
     Indication: STOOL ANALYSIS ABNORMAL
     Dosage: 175 MG; Q48H; IV
     Route: 042
     Dates: start: 20040101

REACTIONS (2)
  - DYSPNOEA EXACERBATED [None]
  - PYREXIA [None]
